FAERS Safety Report 18754325 (Version 4)
Quarter: 2021Q3

REPORT INFORMATION
  Report Type: Report from Study
  Country: US (occurrence: US)
  Receive Date: 20210119
  Receipt Date: 20210916
  Transmission Date: 20211014
  Serious: Yes (Hospitalization)
  Sender: FDA-Public Use
  Company Number: US-ROCHE-2749744

PATIENT
  Age: 82 Year
  Sex: Female
  Weight: 70.5 kg

DRUGS (4)
  1. OBINUTUZUMAB. [Suspect]
     Active Substance: OBINUTUZUMAB
     Indication: CHRONIC LYMPHOCYTIC LEUKAEMIA
     Dosage: CYCLE 1 DAY 1?DATE OF MOST RECENT DOSE PRIOR TO EVENT ONSET: 14/DEC/2020?INTERRUPTED ON 30/DEC/2020
     Route: 042
     Dates: start: 20200921
  2. IBRUTINIB [Suspect]
     Active Substance: IBRUTINIB
     Indication: CHRONIC LYMPHOCYTIC LEUKAEMIA
     Dosage: FOR 15 CYCLES?MOST RECENT DOSE PRIOR TO EVENT ONSET: 28/DEC/2020?TOTAL DOSE ADMINISTERED: 6300 MG
     Route: 048
     Dates: start: 20200921
  3. OBINUTUZUMAB. [Suspect]
     Active Substance: OBINUTUZUMAB
     Dosage: CYCLE 1 DAY 2
     Route: 042
  4. OBINUTUZUMAB. [Suspect]
     Active Substance: OBINUTUZUMAB
     Dosage: CYCLE 1 DAY 8 AND DAY 15, DAY 1 OF CYCLES 2?6
     Route: 042

REACTIONS (4)
  - Dysarthria [Not Recovered/Not Resolved]
  - Clumsiness [Not Recovered/Not Resolved]
  - Transient ischaemic attack [Recovered/Resolved]
  - Headache [Not Recovered/Not Resolved]

NARRATIVE: CASE EVENT DATE: 20201228
